FAERS Safety Report 22168789 (Version 3)
Quarter: 2023Q2

REPORT INFORMATION
  Report Type: Spontaneous
  Country: US (occurrence: US)
  Receive Date: 20230403
  Receipt Date: 20230526
  Transmission Date: 20230722
  Serious: Yes (Hospitalization)
  Sender: FDA-Public Use
  Company Number: US-CYCLE PHARMACEUTICALS LTD-2023-CYC-000008

PATIENT

DRUGS (4)
  1. NITYR [Suspect]
     Active Substance: NITISINONE
     Indication: Tyrosinaemia
     Dosage: 30 MG, QD; THREE TABLETS BY MOUTH
     Route: 048
     Dates: start: 20201123
  2. NITYR [Suspect]
     Active Substance: NITISINONE
     Indication: Amino acid metabolism disorder
     Dosage: 2 TABLETS BY MOUTH ONCE DAILY
     Route: 048
  3. LIOTHYRONINE [Suspect]
     Active Substance: LIOTHYRONINE
     Indication: Product used for unknown indication
     Dosage: 5 ?G, BID
     Route: 048
  4. VITAMIN D2 [Concomitant]
     Active Substance: ERGOCALCIFEROL
     Indication: Product used for unknown indication
     Dosage: 1250 MICROGRAM PER GRAM, CAPSULE
     Route: 065

REACTIONS (9)
  - Depression [Unknown]
  - Suicidal ideation [Unknown]
  - Autism spectrum disorder [Unknown]
  - Mental disorder [Unknown]
  - Gastrointestinal disorder [Unknown]
  - Headache [Not Recovered/Not Resolved]
  - Pyrexia [Unknown]
  - Vomiting [Unknown]
  - Drug interaction [Unknown]

NARRATIVE: CASE EVENT DATE: 20230101
